FAERS Safety Report 25193725 (Version 1)
Quarter: 2025Q2

REPORT INFORMATION
  Report Type: Spontaneous
  Country: US (occurrence: None)
  Receive Date: 20250411
  Receipt Date: 20250411
  Transmission Date: 20250716
  Serious: Yes (unspecified)
  Sender: FDA-CTU
  Company Number: None

PATIENT
  Age: 69 Year
  Sex: Female
  Weight: 83 kg

DRUGS (1)
  1. PACLITAXEL [Suspect]
     Active Substance: PACLITAXEL
     Indication: Non-small cell lung cancer stage IIIB
     Dosage: FREQUENCY : WEEKLY;?
     Route: 040
     Dates: start: 20250408, end: 20250408

REACTIONS (4)
  - Dyspnoea [None]
  - Throat tightness [None]
  - Flushing [None]
  - Cough [None]

NARRATIVE: CASE EVENT DATE: 20250408
